FAERS Safety Report 5743611-3 (Version None)
Quarter: 2008Q2

REPORT INFORMATION
  Report Type: 
  Country: None (occurrence: None)
  Receive Date: 20080516
  Receipt Date: 20080505
  Transmission Date: 20081010
  Serious: Yes (Hospitalization, Other)
  Sender: FDA-Public Use
  Company Number: 2006US001853

PATIENT
  Age: 62 Year
  Sex: Male
  Weight: 74.8 kg

DRUGS (14)
  1. AMEVIVE [Suspect]
     Indication: PSORIASIS
     Dosage: 15 MG, WEEKLY; INTRAMUSCULAR
     Route: 030
     Dates: start: 20060317, end: 20060519
  2. INSULIN, REGULAR (INSULIN) [Concomitant]
  3. ZESTRIL [Concomitant]
  4. HYDROCHLOROTHIAZIDE [Concomitant]
  5. RABEPRAZOLE SODIUM [Concomitant]
  6. LANTUS [Concomitant]
  7. CALCITROL (ERGOCALCIFEROL, RETINOL) [Concomitant]
  8. LISINOPRIL [Concomitant]
  9. HYDROCORTISONE/SALICYLIC ACID ONTMENT [Concomitant]
  10. CELESTODERM [Concomitant]
  11. VITAMIN D [Concomitant]
  12. HUMULIN N (INSULIN HUMAN) [Concomitant]
  13. TIMOPTIC [Concomitant]
  14. EPREX [Concomitant]

REACTIONS (13)
  - ANAEMIA [None]
  - BLOOD CALCIUM DECREASED [None]
  - CALCINOSIS [None]
  - CALCIUM IONISED DECREASED [None]
  - CD4 LYMPHOCYTES DECREASED [None]
  - DYSPLASTIC NAEVUS SYNDROME [None]
  - GLYCOSYLATED HAEMOGLOBIN INCREASED [None]
  - JAUNDICE CHOLESTATIC [None]
  - LUNG NEOPLASM [None]
  - PANCREATIC ATROPHY [None]
  - PANCYTOPENIA [None]
  - PLATELET COUNT DECREASED [None]
  - RENAL IMPAIRMENT [None]
